FAERS Safety Report 4363301-1 (Version None)
Quarter: 2004Q2

REPORT INFORMATION
  Report Type: 
  Country: None (occurrence: None)
  Receive Date: 20040517
  Receipt Date: 20040129
  Transmission Date: 20050107
  Serious: No
  Sender: FDA-Public Use
  Company Number: S04-USA-00403-01

PATIENT
  Age: 65 Year
  Sex: Male

DRUGS (4)
  1. NAMENDA [Suspect]
     Indication: DEMENTIA ALZHEIMER'S TYPE
     Dosage: 5MG QD PO
     Route: 048
     Dates: start: 20040117, end: 20040123
  2. NAMENDA [Suspect]
     Indication: DEMENTIA ALZHEIMER'S TYPE
     Dosage: 10MG QD PO
     Route: 048
     Dates: start: 20040124, end: 20040126
  3. ARICEPT [Concomitant]
  4. EFFEXOR [Concomitant]

REACTIONS (2)
  - ANGER [None]
  - CONFUSIONAL STATE [None]
